FAERS Safety Report 8626440 (Version 2)
Quarter: 2014Q1

REPORT INFORMATION
  Report Type: Spontaneous
  Country: US (occurrence: US)
  Receive Date: 20120620
  Receipt Date: 20140305
  Transmission Date: 20141002
  Serious: No
  Sender: FDA-Public Use
  Company Number: US-ASTRAZENECA-2012SE21985

PATIENT
  Age: 79 Year
  Sex: Female

DRUGS (5)
  1. CRESTOR [Suspect]
     Route: 048
  2. CRESTOR [Suspect]
     Route: 048
  3. NEXIUM [Suspect]
     Route: 048
     Dates: end: 201401
  4. PEPCID AC [Concomitant]
     Indication: DYSPEPSIA
  5. PEPCID [Concomitant]

REACTIONS (8)
  - Gait disturbance [Unknown]
  - Dyspepsia [Not Recovered/Not Resolved]
  - Discomfort [Unknown]
  - Muscle spasms [Unknown]
  - Muscle spasms [Unknown]
  - Myalgia [Unknown]
  - Abdominal discomfort [Unknown]
  - Drug dose omission [Unknown]
